FAERS Safety Report 5216068-9 (Version None)
Quarter: 2007Q1

REPORT INFORMATION
  Report Type: 
  Country: None (occurrence: None)
  Receive Date: 20070118
  Receipt Date: 20070104
  Transmission Date: 20070707
  Serious: Yes (Death, Hospitalization)
  Sender: FDA-Public Use
  Company Number: 2005BI003058

PATIENT
  Age: 38 Year
  Sex: Female

DRUGS (12)
  1. AVONEX [Suspect]
     Indication: MULTIPLE SCLEROSIS
     Dosage: 30 MG;QW;IM
     Route: 030
     Dates: start: 19970710, end: 20030701
  2. AVONEX [Suspect]
     Indication: MULTIPLE SCLEROSIS
     Dosage: 30 UG;QW;IM
     Route: 030
     Dates: start: 20030801, end: 20040701
  3. OXYCONTIN [Concomitant]
  4. PERCOCET [Concomitant]
  5. AMANTADINE HCL [Concomitant]
  6. ZOLOFT [Concomitant]
  7. HYZAAR [Concomitant]
  8. DILTIAZEM [Concomitant]
  9. IBUPROFEN [Concomitant]
  10. ANTIHYPERTENSIVE MEDICATIOS (NOS) [Concomitant]
  11. FLAGYL [Concomitant]
  12. DOXYCYCLINE [Concomitant]

REACTIONS (8)
  - ADNEXA UTERI MASS [None]
  - BACK PAIN [None]
  - OVARIAN CYST [None]
  - PELVIC INFLAMMATORY DISEASE [None]
  - PELVIC PAIN [None]
  - SALPINGO-OOPHORECTOMY [None]
  - SQUAMOUS CELL CARCINOMA OF THE CERVIX [None]
  - UTERINE CANCER [None]
